FAERS Safety Report 26151874 (Version 1)
Quarter: 2025Q4

REPORT INFORMATION
  Report Type: Spontaneous
  Country: US (occurrence: US)
  Receive Date: 20251214
  Receipt Date: 20251214
  Transmission Date: 20260118
  Serious: Yes (Hospitalization)
  Sender: PRINSTON PHARMACEUTICAL
  Company Number: US-PRINSTON PHARMACEUTICAL INC.-2025PRN00406

PATIENT
  Age: 25 Year
  Sex: Male

DRUGS (2)
  1. LISINOPRIL [Suspect]
     Active Substance: LISINOPRIL
  2. LISINOPRIL [Suspect]
     Active Substance: LISINOPRIL
     Dosage: DOSE INCREASED

REACTIONS (2)
  - Bundle branch block right [Unknown]
  - Hyperkalaemia [Unknown]
